FAERS Safety Report 19574702 (Version 3)
Quarter: 2021Q3

REPORT INFORMATION
  Report Type: Report from Study
  Country: US (occurrence: US)
  Receive Date: 20210719
  Receipt Date: 20210824
  Transmission Date: 20211014
  Serious: Yes (Other)
  Sender: FDA-Public Use
  Company Number: US-EMD SERONO-9251620

PATIENT
  Age: 62 Year
  Sex: Female
  Weight: 44 kg

DRUGS (2)
  1. REBIF [Suspect]
     Active Substance: INTERFERON BETA-1A
     Indication: MULTIPLE SCLEROSIS
     Route: 058
     Dates: start: 2001
  2. REBIF [Suspect]
     Active Substance: INTERFERON BETA-1A
     Route: 058
     Dates: start: 20140324

REACTIONS (5)
  - Intestinal obstruction [Unknown]
  - Explorative laparotomy [Unknown]
  - Hernia [Recovering/Resolving]
  - Cystitis [Unknown]
  - Depression [Unknown]

NARRATIVE: CASE EVENT DATE: 2018
